FAERS Safety Report 21678154 (Version 1)
Quarter: 2022Q4

REPORT INFORMATION
  Report Type: Spontaneous
  Country: NL (occurrence: NL)
  Receive Date: 20221203
  Receipt Date: 20221203
  Transmission Date: 20230112
  Serious: Yes (Life-Threatening)
  Sender: FDA-Public Use
  Company Number: None

PATIENT
  Sex: Male
  Weight: 90 kg

DRUGS (1)
  1. CAPECITABINE [Suspect]
     Active Substance: CAPECITABINE
     Indication: Gastrointestinal carcinoma
     Dosage: 2000 MILLIGRAM DAILY; 2X A DAY 4 PIECES, CAPECITABINE TABLET FO 500MG / BRAND NAME NOT SPECIFIED, UN
     Dates: start: 20220118

REACTIONS (1)
  - Cardiac arrest [Recovering/Resolving]
